FAERS Safety Report 5813137-7 (Version None)
Quarter: 2008Q3

REPORT INFORMATION
  Report Type: 
  Country: None (occurrence: None)
  Receive Date: 20080717
  Receipt Date: 20080218
  Transmission Date: 20090109
  Serious: No
  Sender: FDA-Public Use
  Company Number: A0710111A

PATIENT
  Age: 60 Year
  Sex: Female

DRUGS (1)
  1. NICORETTE [Suspect]
     Dates: start: 20080125

REACTIONS (2)
  - NAUSEA [None]
  - OROPHARYNGEAL PAIN [None]
